FAERS Safety Report 10986008 (Version 1)
Quarter: 2015Q1

REPORT INFORMATION
  Report Type: Spontaneous
  Country: US (occurrence: None)
  Receive Date: 20150313
  Receipt Date: 20150313
  Transmission Date: 20150721
  Serious: Yes (Other)
  Sender: FDA-Public Use
  Company Number: 1346700

PATIENT
  Sex: Female

DRUGS (3)
  1. PREVACID [Concomitant]
     Active Substance: LANSOPRAZOLE
  2. XOLAIR [Suspect]
     Active Substance: OMALIZUMAB
     Indication: CHRONIC SPONTANEOUS URTICARIA
     Dates: start: 20131218
  3. SINGULAIR (MONTELUKAST SODIUM) [Concomitant]

REACTIONS (3)
  - Urticaria [None]
  - Swelling [None]
  - Hypersensitivity [None]
